FAERS Safety Report 5138680-8 (Version None)
Quarter: 2006Q4

REPORT INFORMATION
  Report Type: 
  Country: None (occurrence: None)
  Receive Date: 20061023
  Receipt Date: 20061013
  Transmission Date: 20070319
  Serious: Yes (Hospitalization, Other)
  Sender: FDA-Public Use
  Company Number: 2006SP004390

PATIENT
  Age: 41 Year
  Sex: Female

DRUGS (4)
  1. PEG-INTRON [Suspect]
     Indication: HEPATITIS C
     Dosage: SC
     Route: 058
     Dates: start: 20060713
  2. REBETOL [Suspect]
     Indication: HEPATITIS C
     Dosage: PO
     Route: 048
     Dates: start: 20060713, end: 20061001
  3. SPIRIVA [Concomitant]
  4. VICOPROFEN [Concomitant]

REACTIONS (12)
  - BACK PAIN [None]
  - BLOOD ALBUMIN ABNORMAL [None]
  - BLOOD POTASSIUM DECREASED [None]
  - BLOOD PRESSURE DECREASED [None]
  - DEHYDRATION [None]
  - LEUKOPENIA [None]
  - NAUSEA [None]
  - PAIN [None]
  - PANCREATIC ENLARGEMENT [None]
  - THROMBOCYTOPENIA [None]
  - VOMITING [None]
  - WEIGHT DECREASED [None]
